FAERS Safety Report 4824627-8 (Version None)
Quarter: 2005Q4

REPORT INFORMATION
  Report Type: 
  Country: None (occurrence: None)
  Receive Date: 20051110
  Receipt Date: 20051010
  Transmission Date: 20060501
  Serious: Yes (Disabling)
  Sender: FDA-Public Use
  Company Number: 2005AP05740

PATIENT
  Age: 17 Year
  Sex: Female

DRUGS (6)
  1. SEROQUEL [Suspect]
     Route: 048
  2. LAMICTAL [Suspect]
     Indication: AFFECTIVE DISORDER
     Route: 048
  3. CHLORPROMAZINE HCL [Suspect]
  4. LITHIUM CARBONATE [Suspect]
     Route: 048
  5. VALPROATE SODIUM [Suspect]
     Route: 048
  6. BIPERIDEN HYDROCHLORIDE TAB [Suspect]
     Route: 048

REACTIONS (1)
  - TOXIC EPIDERMAL NECROLYSIS [None]
